FAERS Safety Report 5177583-X (Version None)
Quarter: 2006Q4

REPORT INFORMATION
  Report Type: 
  Country: None (occurrence: None)
  Receive Date: 20061207
  Receipt Date: 20061127
  Transmission Date: 20070319
  Serious: Yes (Other)
  Sender: FDA-Public Use
  Company Number: 2006120603

PATIENT
  Age: 59 Year
  Sex: Female
  Weight: 71.2147 kg

DRUGS (13)
  1. SUTENT [Suspect]
     Indication: METASTATIC RENAL CELL CARCINOMA
     Dosage: 37.5 MG (37.5 MG, 1 IN 1 D), ORAL
     Route: 048
     Dates: start: 20060913
  2. HYZAAR [Concomitant]
  3. INDERAL [Concomitant]
  4. LABETALOL HCL [Concomitant]
  5. LOPID [Concomitant]
  6. MICRONASE [Concomitant]
  7. PROTONIX [Concomitant]
  8. TRAZODONE HCL [Concomitant]
  9. VICODIN [Concomitant]
  10. ZOLOFT [Concomitant]
  11. XANAX [Concomitant]
  12. VITAMIN E [Concomitant]
  13. OMEGA 3 (FISH OIL) [Concomitant]

REACTIONS (5)
  - ACTIVATED PARTIAL THROMBOPLASTIN TIME PROLONGED [None]
  - HAEMOPTYSIS [None]
  - INTERNATIONAL NORMALISED RATIO INCREASED [None]
  - LABORATORY TEST INTERFERENCE [None]
  - PROTHROMBIN TIME PROLONGED [None]
